FAERS Safety Report 8155979-1 (Version None)
Quarter: 2012Q1

REPORT INFORMATION
  Report Type: 
  Country: None (occurrence: None)
  Receive Date: 20120222
  Receipt Date: 20120213
  Transmission Date: 20120608
  Serious: Yes (Other)
  Sender: FDA-Public Use
  Company Number: US-EISAI INC-E3810-05308-SPO-US

PATIENT
  Sex: Female
  Weight: 67 kg

DRUGS (6)
  1. ACIPHEX [Suspect]
     Indication: GASTRITIS EROSIVE
     Route: 048
  2. CARAFATE [Concomitant]
     Dosage: UNKNOWN
     Route: 048
     Dates: start: 20100101
  3. XANAX [Concomitant]
     Indication: STRESS
     Route: 048
  4. CALCIUM WITH VITAMIND D [Concomitant]
     Indication: OSTEOPOROSIS
     Route: 048
  5. NORCO [Concomitant]
     Indication: OSTEOPOROSIS
     Dosage: UNKNOWN
     Route: 048
     Dates: start: 20090101
  6. ANTIVERT [Concomitant]
     Indication: VERTIGO
     Route: 048

REACTIONS (9)
  - DEMENTIA [None]
  - BLOOD MAGNESIUM DECREASED [None]
  - BLOOD CHOLESTEROL INCREASED [None]
  - RENAL ARTERY STENOSIS [None]
  - ABDOMINAL DISTENSION [None]
  - ABDOMINAL PAIN UPPER [None]
  - STRESS [None]
  - FATIGUE [None]
  - CORONARY ARTERY DISEASE [None]
